FAERS Safety Report 15389272 (Version 1)
Quarter: 2018Q3

REPORT INFORMATION
  Report Type: Report from Study
  Country: TR (occurrence: TR)
  Receive Date: 20180917
  Receipt Date: 20180917
  Transmission Date: 20181010
  Serious: Yes (Death)
  Sender: FDA-Public Use
  Company Number: TR-BEH-2018094771

PATIENT
  Age: 5 Year
  Sex: Female

DRUGS (2)
  1. HUMAN IMMUNOGLOBULIN IV (GENERIC) [Suspect]
     Active Substance: HUMAN IMMUNOGLOBULIN G
     Indication: MYOCARDITIS
     Dosage: 1000 MG/KG, QD
     Route: 042
     Dates: start: 2017
  2. OSELTAMIVIR [Suspect]
     Active Substance: OSELTAMIVIR
     Indication: MYOCARDITIS
     Dosage: UNK
     Route: 065
     Dates: start: 2017

REACTIONS (1)
  - Drug ineffective for unapproved indication [Fatal]
